FAERS Safety Report 21604315 (Version 1)
Quarter: 2022Q4

REPORT INFORMATION
  Report Type: Report from Study
  Country: US (occurrence: US)
  Receive Date: 20221116
  Receipt Date: 20221116
  Transmission Date: 20230113
  Serious: Yes (Other)
  Sender: FDA-Public Use
  Company Number: US-ABBVIE-4202211

PATIENT
  Age: 72 Year
  Sex: Male

DRUGS (1)
  1. SKYRIZI [Suspect]
     Active Substance: RISANKIZUMAB-RZAA
     Indication: Psoriasis
     Dates: start: 20210210

REACTIONS (1)
  - Shoulder arthroplasty [Recovering/Resolving]

NARRATIVE: CASE EVENT DATE: 20221001
